FAERS Safety Report 7366524-2 (Version None)
Quarter: 2011Q1

REPORT INFORMATION
  Report Type: 
  Country: None (occurrence: None)
  Receive Date: 20110322
  Receipt Date: 20110315
  Transmission Date: 20110831
  Serious: Yes (Other)
  Sender: FDA-Public Use
  Company Number: IT-AMGEN-ITASP2011014119

PATIENT
  Age: 83 Year
  Sex: Male

DRUGS (11)
  1. ARANESP [Suspect]
     Indication: RENAL FAILURE CHRONIC
     Dosage: 60 UNK, QWK
     Dates: start: 20110201, end: 20110310
  2. LANOXIN [Concomitant]
  3. MINITRAN [Concomitant]
  4. ZYLORIC [Concomitant]
  5. DAPAROX [Concomitant]
  6. LUVION [Concomitant]
  7. CARDICOR [Concomitant]
  8. ARANESP [Suspect]
     Dosage: 30 UNK, QWK
     Route: 058
     Dates: start: 20010210
  9. ARANESP [Suspect]
     Dosage: 30 UNK, Q2WK
     Dates: start: 20090101
  10. LASIX [Concomitant]
  11. PRADIF [Concomitant]

REACTIONS (3)
  - ANAEMIA [None]
  - RENAL FAILURE CHRONIC [None]
  - APLASIA PURE RED CELL [None]
